FAERS Safety Report 17187916 (Version 6)
Quarter: 2022Q3

REPORT INFORMATION
  Report Type: Report from Study
  Country: US (occurrence: US)
  Receive Date: 20191221
  Receipt Date: 20220922
  Transmission Date: 20221027
  Serious: No
  Sender: FDA-Public Use
  Company Number: NVSC2019US028967

PATIENT
  Sex: Female

DRUGS (2)
  1. COSENTYX [Suspect]
     Active Substance: SECUKINUMAB
     Indication: Product used for unknown indication
     Dosage: UNK
     Route: 065
  2. COSENTYX [Suspect]
     Active Substance: SECUKINUMAB
     Dosage: 300 MG, OTHER,  (ADMINISTER 2 INJECTIONS (300MG) UNDER THE SKIN AT WEEKS 0,1,2,3 AND 4)
     Route: 058

REACTIONS (6)
  - Psoriasis [Unknown]
  - Rash macular [Unknown]
  - COVID-19 [Unknown]
  - Malaise [Unknown]
  - Condition aggravated [Unknown]
  - Product dose omission issue [Unknown]
